FAERS Safety Report 7274369-7 (Version None)
Quarter: 2011Q1

REPORT INFORMATION
  Report Type: 
  Country: None (occurrence: None)
  Receive Date: 20110201
  Receipt Date: 20110201
  Transmission Date: 20110831
  Serious: No
  Sender: FDA-Public Use
  Company Number: None

PATIENT
  Age: 45 Year
  Sex: Female
  Weight: 77.1115 kg

DRUGS (1)
  1. PROTONIX [Suspect]
     Indication: GASTROOESOPHAGEAL REFLUX DISEASE
     Dosage: ONE TABLET BID PO
     Route: 048
     Dates: start: 20070601, end: 20101223

REACTIONS (3)
  - GASTRIC POLYPS [None]
  - ABDOMINAL PAIN [None]
  - CHEST PAIN [None]
